FAERS Safety Report 4718271-0 (Version None)
Quarter: 2005Q3

REPORT INFORMATION
  Report Type: 
  Country: None (occurrence: None)
  Receive Date: 20050720
  Receipt Date: 20050714
  Transmission Date: 20060218
  Serious: Yes (Other)
  Sender: FDA-Public Use
  Company Number: PHBS2005JP10244

PATIENT

DRUGS (1)
  1. RITALIN [Suspect]
     Dosage: 100 MG/D
     Route: 048

REACTIONS (1)
  - DRUG TOXICITY [None]
